FAERS Safety Report 16370239 (Version 4)
Quarter: 2019Q3

REPORT INFORMATION
  Report Type: Report from Study
  Country: CA (occurrence: CA)
  Receive Date: 20190530
  Receipt Date: 20190813
  Transmission Date: 20191004
  Serious: Yes (Death)
  Sender: FDA-Public Use
  Company Number: CA-ROCHE-2327733

PATIENT
  Sex: Female
  Weight: 150.6 kg

DRUGS (10)
  1. LORAZEPAM. [Concomitant]
     Active Substance: LORAZEPAM
     Dosage: ONGOING
     Route: 065
     Dates: start: 201806
  2. ROSUVASTATIN. [Concomitant]
     Active Substance: ROSUVASTATIN
     Dosage: ONGOING
     Route: 065
     Dates: start: 2017
  3. RANITIDINE. [Concomitant]
     Active Substance: RANITIDINE
     Dosage: ONGOING
     Route: 065
     Dates: start: 2018
  4. METFORMIN [Concomitant]
     Active Substance: METFORMIN HYDROCHLORIDE
     Route: 065
     Dates: start: 2017
  5. TYLENOL EXTRA STRENGTH [Concomitant]
     Active Substance: ACETAMINOPHEN
     Dosage: ONGOING
     Route: 065
     Dates: start: 2010
  6. RAMIPRIL. [Concomitant]
     Active Substance: RAMIPRIL
     Route: 065
     Dates: start: 2017
  7. DEXAMETHASONE. [Concomitant]
     Active Substance: DEXAMETHASONE
     Dosage: ONGOING
     Route: 065
     Dates: start: 201810
  8. BEVACIZUMAB. [Suspect]
     Active Substance: BEVACIZUMAB
     Indication: GLIOBLASTOMA
     Dosage: MOST RECENT DOSE OF BEVACIZUMAB PRIOR TO THE EVENT ON 18/APR/2019, AT A DOSE OF 1506 MG EVERY
     Route: 042
     Dates: start: 20190123, end: 20190419
  9. AMLODIPINE BESILATE [Concomitant]
     Active Substance: AMLODIPINE BESYLATE
     Dosage: ONGOING
     Route: 065
     Dates: start: 2017
  10. DILANTIN [Concomitant]
     Active Substance: PHENYTOIN
     Route: 065
     Dates: start: 2018

REACTIONS (1)
  - Death [Fatal]
